FAERS Safety Report 6492393-9 (Version None)
Quarter: 2009Q4

REPORT INFORMATION
  Report Type: 
  Country: None (occurrence: None)
  Receive Date: 20091214
  Receipt Date: 20091204
  Transmission Date: 20100525
  Serious: Yes (Other)
  Sender: FDA-Public Use
  Company Number: US-ROCHE-651653

PATIENT
  Sex: Male
  Weight: 73 kg

DRUGS (6)
  1. PEGASYS [Suspect]
     Indication: HEPATITIS C
     Route: 058
     Dates: start: 20090728
  2. PEGASYS [Suspect]
     Route: 058
     Dates: start: 20090918
  3. RIBAPAK [Suspect]
     Indication: HEPATITIS C
     Dosage: DIVIDED DOSES
     Route: 048
     Dates: start: 20090728
  4. RIBAPAK [Suspect]
     Route: 048
     Dates: start: 20090918
  5. CARVEDILOL [Concomitant]
     Route: 048
  6. HYDROCHLOROTHIAZIDE [Concomitant]

REACTIONS (11)
  - ANAEMIA [None]
  - BALANCE DISORDER [None]
  - BLOOD PRESSURE DECREASED [None]
  - DEPRESSED MOOD [None]
  - DEPRESSION [None]
  - EMPHYSEMA [None]
  - ERYTHEMA [None]
  - FATIGUE [None]
  - INFLUENZA LIKE ILLNESS [None]
  - INSOMNIA [None]
  - WEIGHT INCREASED [None]
